FAERS Safety Report 10026536 (Version 2)
Quarter: 2014Q2

REPORT INFORMATION
  Report Type: Report from Study
  Country: US (occurrence: US)
  Receive Date: 20140321
  Receipt Date: 20140516
  Transmission Date: 20141212
  Serious: Yes (Hospitalization)
  Sender: FDA-Public Use
  Company Number: US-BIOGENIDEC-2014BI024144

PATIENT
  Age: 52 Year
  Sex: Female

DRUGS (8)
  1. TECFIDERA [Suspect]
     Indication: MULTIPLE SCLEROSIS
     Route: 048
  2. NUVIGIL [Concomitant]
  3. ALLEGRA D [Concomitant]
  4. MUCINEX [Concomitant]
  5. DOXYCYCLINE [Concomitant]
  6. CRESTOR [Concomitant]
  7. ZOLPIDEM [Concomitant]
  8. CALCIUM + D [Concomitant]

REACTIONS (2)
  - Humerus fracture [Unknown]
  - Diarrhoea [Unknown]
